FAERS Safety Report 6058910-8 (Version None)
Quarter: 2009Q1

REPORT INFORMATION
  Report Type: 
  Country: None (occurrence: None)
  Receive Date: 20090130
  Receipt Date: 20090119
  Transmission Date: 20090719
  Serious: Yes (Hospitalization)
  Sender: FDA-Public Use
  Company Number: ES-PFIZER INC-2009162274

PATIENT

DRUGS (9)
  1. CAMPTOSAR [Suspect]
     Indication: COLON CANCER
     Dosage: UNK
     Route: 042
     Dates: start: 20080701, end: 20080930
  2. AVASTIN [Suspect]
     Indication: COLON CANCER
     Dosage: UNK
     Route: 042
     Dates: start: 20080701, end: 20080930
  3. CETUXIMAB [Suspect]
     Indication: COLON CANCER
     Dosage: UNK
     Route: 042
     Dates: start: 20080701, end: 20080930
  4. HIBOR [Suspect]
     Indication: PELVIC VENOUS THROMBOSIS
     Dosage: UNK
     Dates: start: 20080901
  5. IRBESARTAN [Concomitant]
     Route: 048
  6. MASTICAL [Concomitant]
     Route: 048
  7. URBAL [Concomitant]
     Route: 048
  8. FERRO SANOL [Concomitant]
     Route: 048
  9. ALMAX [Concomitant]
     Route: 048

REACTIONS (6)
  - GASTROINTESTINAL HAEMORRHAGE [None]
  - HAEMOLYTIC URAEMIC SYNDROME [None]
  - MICROANGIOPATHIC HAEMOLYTIC ANAEMIA [None]
  - PANCYTOPENIA [None]
  - RENAL FAILURE ACUTE [None]
  - RENAL TUBULAR NECROSIS [None]
